FAERS Safety Report 8057594-7 (Version None)
Quarter: 2012Q1

REPORT INFORMATION
  Report Type: 
  Country: None (occurrence: None)
  Receive Date: 20120120
  Receipt Date: 20120112
  Transmission Date: 20120608
  Serious: Yes (Death)
  Sender: FDA-Public Use
  Company Number: US-BIOGENIDEC-2011BI044173

PATIENT
  Sex: Male

DRUGS (3)
  1. COUMADIN [Concomitant]
  2. AVONEX [Suspect]
     Route: 030
  3. AVONEX [Suspect]
     Indication: MULTIPLE SCLEROSIS
     Route: 030
     Dates: start: 19990701, end: 20031201

REACTIONS (3)
  - ANEURYSM [None]
  - DEATH [None]
  - MULTIPLE SCLEROSIS [None]
